FAERS Safety Report 8256314-0 (Version None)
Quarter: 2012Q2

REPORT INFORMATION
  Report Type: 
  Country: None (occurrence: None)
  Receive Date: 20120403
  Receipt Date: 20120324
  Transmission Date: 20120825
  Serious: Yes (Other)
  Sender: FDA-Public Use
  Company Number: US-PURDUE-USA-2012-0084508

PATIENT
  Sex: Male
  Weight: 63.492 kg

DRUGS (2)
  1. OXYCONTIN [Suspect]
     Indication: PAIN
     Dosage: 40 MG, TID
     Route: 048
     Dates: start: 20110105, end: 20110111
  2. OXYCONTIN [Suspect]
     Indication: SPINAL CORD INJURY

REACTIONS (8)
  - FALL [None]
  - WRONG TECHNIQUE IN DRUG USAGE PROCESS [None]
  - HEAD INJURY [None]
  - SUICIDAL IDEATION [None]
  - AMNESIA [None]
  - DEPRESSION [None]
  - SPINAL FRACTURE [None]
  - DYSPNOEA [None]
